FAERS Safety Report 6389889-7 (Version None)
Quarter: 2009Q4

REPORT INFORMATION
  Report Type: 
  Country: None (occurrence: None)
  Receive Date: 20091006
  Receipt Date: 20090213
  Transmission Date: 20100525
  Serious: No
  Sender: FDA-Public Use
  Company Number: US-BRISTOL-MYERS SQUIBB COMPANY-14506992

PATIENT
  Age: 80 Year
  Sex: Female
  Weight: 66 kg

DRUGS (3)
  1. AVAPRO [Suspect]
     Indication: HYPERTENSION
  2. LIPITOR [Concomitant]
  3. WATER [Concomitant]
     Dosage: PILL

REACTIONS (1)
  - DYSGEUSIA [None]
